FAERS Safety Report 8333275-7 (Version None)
Quarter: 2012Q2

REPORT INFORMATION
  Report Type: 
  Country: None (occurrence: None)
  Receive Date: 20120503
  Receipt Date: 20120502
  Transmission Date: 20120825
  Serious: Yes (Other)
  Sender: FDA-Public Use
  Company Number: US-PFIZER INC-2012108021

PATIENT
  Sex: Female
  Weight: 52.154 kg

DRUGS (23)
  1. NICOTINE [Suspect]
     Dosage: UNK
  2. WELLBUTRIN [Suspect]
     Dosage: UNK
  3. VICODIN [Suspect]
     Dosage: UNK
  4. DEMEROL [Suspect]
     Dosage: UNK
  5. CHANTIX [Suspect]
     Indication: SMOKING CESSATION THERAPY
     Dosage: UNK
  6. BUSPAR [Suspect]
     Indication: ANXIETY
     Dosage: 5 MG, DAILY
  7. SPIRIVA [Concomitant]
     Indication: CHRONIC OBSTRUCTIVE PULMONARY DISEASE
     Dosage: UNK
  8. BUSPAR [Suspect]
     Dosage: UNK
  9. LISINOPRIL [Concomitant]
     Dosage: 30 MG, (20 MG IN MORNING AND 10 MG IN THE NIGHT)
  10. LORATADINE [Concomitant]
     Indication: HYPERSENSITIVITY
     Dosage: 10 MG, DAILY
  11. ADVAIR DISKUS 100/50 [Concomitant]
     Indication: CHRONIC OBSTRUCTIVE PULMONARY DISEASE
     Dosage: UNK
  12. MULTI-VITAMINS [Concomitant]
     Dosage: UNK
  13. POTASSIUM [Concomitant]
     Dosage: UNK
  14. NICOTINE [Suspect]
     Dosage: UNK
  15. LISINOPRIL [Concomitant]
     Indication: HYPERTENSION
     Dosage: 20 MG, DAILY (IN THE MORNING)
  16. NORVASC [Concomitant]
     Indication: HYPERTENSION
     Dosage: 10 MG, DAILY
  17. CODEINE [Suspect]
     Dosage: UNK
  18. COMBIVENT [Concomitant]
     Indication: CHRONIC OBSTRUCTIVE PULMONARY DISEASE
     Dosage: UNK
  19. COMBIVENT [Concomitant]
     Indication: EMPHYSEMA
  20. SPIRIVA [Concomitant]
     Indication: EMPHYSEMA
  21. ADVAIR DISKUS 100/50 [Concomitant]
     Indication: EMPHYSEMA
  22. NICOTINE [Suspect]
     Indication: SMOKING CESSATION THERAPY
     Dosage: UNK
  23. VERAMYST [Concomitant]
     Indication: HYPERSENSITIVITY
     Dosage: UNK, DAILY

REACTIONS (7)
  - HYPERSENSITIVITY [None]
  - NAUSEA [None]
  - MALAISE [None]
  - VOMITING [None]
  - CONVULSION [None]
  - TOOTH DISORDER [None]
  - RASH [None]
